FAERS Safety Report 9095061 (Version 1)
Quarter: 2013Q1

REPORT INFORMATION
  Report Type: Spontaneous
  Country: US (occurrence: None)
  Receive Date: 20130214
  Receipt Date: 20130214
  Transmission Date: 20140127
  Serious: No
  Sender: FDA-Public Use
  Company Number: None

PATIENT
  Age: 63 Year
  Sex: Female
  Weight: 130.64 kg

DRUGS (1)
  1. PIOGLITAZONE TABLETS 30MG. TEVA PHARMACEUTICALS USA [Suspect]
     Indication: BLOOD GLUCOSE ABNORMAL
     Dosage: 1DAILY?BEING USED OVER 2 MONTHS

REACTIONS (6)
  - Vision blurred [None]
  - Pain in extremity [None]
  - Fatigue [None]
  - Nausea [None]
  - Abdominal pain upper [None]
  - Myalgia [None]
